FAERS Safety Report 7490550-6 (Version None)
Quarter: 2011Q2

REPORT INFORMATION
  Report Type: 
  Country: None (occurrence: None)
  Receive Date: 20110519
  Receipt Date: 20110518
  Transmission Date: 20111010
  Serious: Yes (Life-Threatening)
  Sender: FDA-Public Use
  Company Number: AU-PFIZER INC-2011107112

PATIENT
  Age: 60 Year
  Sex: Female
  Weight: 72 kg

DRUGS (3)
  1. NEXIUM [Concomitant]
     Dosage: UNK
  2. VARENICLINE TARTRATE [Suspect]
     Dosage: 1 MG, UNK
     Dates: start: 20110215, end: 20110424
  3. LEXAPRO [Concomitant]
     Dosage: UNK

REACTIONS (2)
  - SUICIDAL BEHAVIOUR [None]
  - PSYCHOTIC BEHAVIOUR [None]
